FAERS Safety Report 9889573 (Version 2)
Quarter: 2014Q2

REPORT INFORMATION
  Report Type: Spontaneous
  Country: DE (occurrence: DE)
  Receive Date: 20140211
  Receipt Date: 20140523
  Transmission Date: 20141212
  Serious: Yes (Hospitalization, Other)
  Sender: FDA-Public Use
  Company Number: US-ASTRAZENECA-2014SE09187

PATIENT
  Age: 0 Year
  Sex: Male
  Weight: 8.8 kg

DRUGS (5)
  1. SYNAGIS [Suspect]
     Indication: ATRIOVENTRICULAR SEPTAL DEFECT
     Route: 030
  2. SYNAGIS [Suspect]
     Indication: ATRIOVENTRICULAR SEPTAL DEFECT
     Route: 030
     Dates: start: 20131125, end: 20131125
  3. SYNAGIS [Suspect]
     Indication: ATRIOVENTRICULAR SEPTAL DEFECT
     Route: 030
     Dates: start: 20131125, end: 20131125
  4. SYNAGIS [Suspect]
     Indication: ATRIOVENTRICULAR SEPTAL DEFECT
     Route: 030
     Dates: start: 20140102, end: 20140102
  5. SYNAGIS [Suspect]
     Indication: ATRIOVENTRICULAR SEPTAL DEFECT
     Route: 030
     Dates: start: 20140102, end: 20140102

REACTIONS (4)
  - Stridor [Recovered/Resolved]
  - Tracheitis [Recovered/Resolved]
  - Respiratory tract infection [Unknown]
  - Pseudocroup [Unknown]
